FAERS Safety Report 8904829 (Version 1)
Quarter: 2012Q4

REPORT INFORMATION
  Report Type: 
  Country: CN (occurrence: CN)
  Receive Date: 20121109
  Receipt Date: 20121109
  Transmission Date: 20130627
  Serious: Yes (Other)
  Sender: FDA-Public Use
  Company Number: CN-ABBOTT-12P-035-1005989-00

PATIENT
  Age: 41 Year
  Sex: Male

DRUGS (4)
  1. DEPAKINE CHRONO [Suspect]
     Indication: EPILEPSY
     Dosage: 500 milligram daily
     Route: 048
     Dates: start: 2010, end: 201004
  2. DEPAKINE CHRONO [Suspect]
     Dosage: 1000 mg daily
     Route: 048
     Dates: start: 201004
  3. DEPAKINE CHRONO [Suspect]
     Dosage: 500mg daily
     Route: 048
  4. NIMODIPINE [Concomitant]
     Indication: PRODUCT USED FOR UNKNOWN INDICATION

REACTIONS (4)
  - Syncope [Unknown]
  - Epilepsy [Unknown]
  - Convulsion [Unknown]
  - Loss of consciousness [Unknown]
